FAERS Safety Report 15112967 (Version 5)
Quarter: 2018Q4

REPORT INFORMATION
  Report Type: Report from Study
  Country: US (occurrence: US)
  Receive Date: 20180705
  Receipt Date: 20181105
  Transmission Date: 20190204
  Serious: No
  Sender: FDA-Public Use
  Company Number: PHEH2018US027638

PATIENT
  Sex: Female

DRUGS (4)
  1. SYNTHROID [Concomitant]
     Active Substance: LEVOTHYROXINE SODIUM
     Indication: PRODUCT USED FOR UNKNOWN INDICATION
     Route: 065
  2. COSENTYX [Suspect]
     Active Substance: SECUKINUMAB
     Dosage: 150 MG, (PEN)
     Route: 065
  3. COSENTYX [Suspect]
     Active Substance: SECUKINUMAB
     Dosage: 150 MG, (PEN)
     Route: 065
  4. COSENTYX [Suspect]
     Active Substance: SECUKINUMAB
     Indication: PSORIASIS
     Dosage: 300 MG, Q4W
     Route: 058
     Dates: start: 20180531

REACTIONS (9)
  - Pain [Unknown]
  - Drug ineffective [Unknown]
  - Fatigue [Unknown]
  - Arthralgia [Unknown]
  - Stress [Unknown]
  - Psoriasis [Unknown]
  - Nail disorder [Recovering/Resolving]
  - Arthritis [Unknown]
  - Nail avulsion [Not Recovered/Not Resolved]
